FAERS Safety Report 6608038-0 (Version None)
Quarter: 2010Q1

REPORT INFORMATION
  Report Type: 
  Country: None (occurrence: None)
  Receive Date: 20100226
  Receipt Date: 20100226
  Transmission Date: 20100710
  Serious: No
  Sender: FDA-Public Use
  Company Number: None

PATIENT
  Age: 33 Year
  Sex: Male
  Weight: 78.9259 kg

DRUGS (10)
  1. LITHIUM CARBONATE [Suspect]
     Dosage: 300MG SR BID PO
     Route: 048
  2. OLANZAPINE [Concomitant]
  3. SERTRALINE HCL [Concomitant]
  4. FERROUS SULFATE TAB [Concomitant]
  5. DOCUSATE [Concomitant]
  6. SENNA [Concomitant]
  7. CLINDAMYCIN CR [Concomitant]
  8. CLONAZEPAM [Concomitant]
  9. ZOLPIDEM [Concomitant]
  10. GABAPENTIN [Concomitant]

REACTIONS (1)
  - HYPOCALCAEMIA [None]
